FAERS Safety Report 19934176 (Version 2)
Quarter: 2021Q4

REPORT INFORMATION
  Report Type: Spontaneous
  Country: US (occurrence: US)
  Receive Date: 20211008
  Receipt Date: 20211021
  Transmission Date: 20220303
  Serious: Yes (Other)
  Sender: FDA-Public Use
  Company Number: US-BAYER-2021A226521

PATIENT
  Age: 47 Year

DRUGS (1)
  1. KERENDIA [Suspect]
     Active Substance: FINERENONE
     Dosage: 10 MG
     Dates: start: 20210923, end: 20210930

REACTIONS (2)
  - Blood creatinine increased [None]
  - Off label use [None]

NARRATIVE: CASE EVENT DATE: 20210923
